FAERS Safety Report 8812571 (Version 1)
Quarter: 2012Q4

REPORT INFORMATION
  Report Type: 
  Country: US (occurrence: US)
  Receive Date: 20120927
  Receipt Date: 20120927
  Transmission Date: 20130627
  Serious: Yes (Death, Hospitalization, Other)
  Sender: FDA-Public Use
  Company Number: US-ROCHE-213217

PATIENT
  Age: 57 Year
  Sex: Female
  Weight: 81.6 kg

DRUGS (3)
  1. HERCEPTIN [Suspect]
     Indication: BREAST CANCER METASTATIC
     Route: 042
     Dates: start: 19990805, end: 19990805
  2. TAXOTERE [Concomitant]
     Indication: BREAST CANCER METASTATIC
     Dosage: FIRST DOSE
     Route: 065
     Dates: start: 19990725, end: 19990725
  3. O2 [Concomitant]
     Indication: METASTASES TO LUNG
     Route: 065
     Dates: start: 19990725, end: 19990805

REACTIONS (4)
  - Respiratory distress [Fatal]
  - Hypoxia [Unknown]
  - Bronchopneumonia [Unknown]
  - Hypertension [Unknown]
